FAERS Safety Report 7331588-9 (Version None)
Quarter: 2011Q1

REPORT INFORMATION
  Report Type: 
  Country: None (occurrence: None)
  Receive Date: 20110304
  Receipt Date: 20101220
  Transmission Date: 20110831
  Serious: No
  Sender: FDA-Public Use
  Company Number: A0900633A

PATIENT
  Age: 44 Year
  Sex: Female

DRUGS (2)
  1. LAMICTAL [Suspect]
     Indication: BIPOLAR DISORDER
     Dosage: 300MG PER DAY
     Route: 048
     Dates: start: 20080101, end: 20101216
  2. TOPAMAX [Concomitant]

REACTIONS (3)
  - EXFOLIATIVE RASH [None]
  - RASH [None]
  - TREATMENT NONCOMPLIANCE [None]
